FAERS Safety Report 7819508-1 (Version None)
Quarter: 2011Q4

REPORT INFORMATION
  Report Type: 
  Country: None (occurrence: None)
  Receive Date: 20111018
  Receipt Date: 20110210
  Transmission Date: 20120403
  Serious: No
  Sender: FDA-Public Use
  Company Number: US-ASTRAZENECA-2010SE08124

PATIENT
  Age: 51 Year
  Sex: Female
  Weight: 54.4 kg

DRUGS (5)
  1. SYMBICORT [Suspect]
     Indication: WHEEZING
     Dosage: 160/4.5MCG,2 PUFFS TWICE
     Route: 055
     Dates: start: 20100101
  2. SYMBICORT [Suspect]
     Indication: COUGH
     Dosage: 160/4.5MCG,2 PUFFS TWICE
     Route: 055
     Dates: start: 20100101
  3. VITAMIN TAB [Concomitant]
  4. SYMBICORT [Suspect]
     Indication: DYSPNOEA
     Dosage: 160/4.5MCG,2 PUFFS TWICE
     Route: 055
     Dates: start: 20100101
  5. SYMBICORT [Suspect]
     Indication: LUNG INFECTION
     Dosage: 160/4.5MCG,2 PUFFS TWICE
     Route: 055
     Dates: start: 20100101

REACTIONS (3)
  - DRY EYE [None]
  - ROAD TRAFFIC ACCIDENT [None]
  - EYE PAIN [None]
